FAERS Safety Report 21444937 (Version 1)
Quarter: 2022Q4

REPORT INFORMATION
  Report Type: Spontaneous
  Country: US (occurrence: None)
  Receive Date: 20221010
  Receipt Date: 20221010
  Transmission Date: 20230113
  Serious: Yes (Hospitalization)
  Sender: FDA-Public Use
  Company Number: None

PATIENT
  Age: 75 Year
  Sex: Female
  Weight: 86.2 kg

DRUGS (1)
  1. PALBOCICLIB [Suspect]
     Active Substance: PALBOCICLIB
     Indication: Breast cancer
     Dosage: OTHER FREQUENCY : Q21 DAYS, 7 OFF;?
     Route: 048
     Dates: start: 20220315

REACTIONS (3)
  - Urinary tract infection [None]
  - Pneumonia [None]
  - Hyperglycaemia [None]

NARRATIVE: CASE EVENT DATE: 20221009
